FAERS Safety Report 16073406 (Version 1)
Quarter: 2019Q1

REPORT INFORMATION
  Report Type: Report from Study
  Country: IL (occurrence: IL)
  Receive Date: 20190314
  Receipt Date: 20190314
  Transmission Date: 20190418
  Serious: Yes (Hospitalization)
  Sender: FDA-Public Use
  Company Number: IL-SA-2019SA035228

PATIENT
  Age: 58 Year
  Sex: Male

DRUGS (4)
  1. SOLOSTAR [Suspect]
     Active Substance: DEVICE
     Dosage: 35 DF, QD
     Route: 058
  2. SOLOSTAR [Suspect]
     Active Substance: DEVICE
     Dosage: 40 U, QD
     Route: 058
     Dates: start: 20190113
  3. INSULIN GLARGINE/LIXISENATIDE [Suspect]
     Active Substance: INSULIN GLARGINE\LIXISENATIDE
     Dosage: 40 U, QD
     Route: 058
     Dates: start: 20190113
  4. INSULIN GLARGINE/LIXISENATIDE [Suspect]
     Active Substance: INSULIN GLARGINE\LIXISENATIDE
     Dosage: 35 DF, QD
     Route: 058

REACTIONS (5)
  - Dehydration [Recovering/Resolving]
  - Decreased appetite [Not Recovered/Not Resolved]
  - Blood glucose increased [Not Recovered/Not Resolved]
  - Product dose omission [Unknown]
  - Influenza [Recovering/Resolving]
